FAERS Safety Report 13245681 (Version 1)
Quarter: 2017Q1

REPORT INFORMATION
  Report Type: Spontaneous
  Country: DE (occurrence: DE)
  Receive Date: 20170217
  Receipt Date: 20170217
  Transmission Date: 20170428
  Serious: No
  Sender: FDA-Public Use
  Company Number: DE-PERNIX THERAPEUTICS-2016PT000082

PATIENT

DRUGS (1)
  1. KEIMAX [Suspect]
     Active Substance: CEFTIBUTEN
     Indication: BACTERIAL INFECTION
     Dosage: 400 MG, UNKNOWN
     Route: 048
     Dates: start: 20160305

REACTIONS (3)
  - Headache [Not Recovered/Not Resolved]
  - Nausea [Not Recovered/Not Resolved]
  - Abdominal pain [Not Recovered/Not Resolved]

NARRATIVE: CASE EVENT DATE: 201603
